FAERS Safety Report 23417684 (Version 1)
Quarter: 2024Q1

REPORT INFORMATION
  Report Type: Spontaneous
  Country: US (occurrence: US)
  Receive Date: 20240118
  Receipt Date: 20240118
  Transmission Date: 20240410
  Serious: No
  Sender: FDA-Public Use
  Company Number: US-SK LIFE SCIENCE, INC-SKPVG-2023-001237

PATIENT

DRUGS (8)
  1. XCOPRI [Suspect]
     Active Substance: CENOBAMATE
     Indication: Seizure
     Dosage: UNK
     Route: 048
  2. XCOPRI [Suspect]
     Active Substance: CENOBAMATE
     Indication: Epilepsy
     Dosage: 200MG AND 50MG, QD
     Route: 048
  3. XCOPRI [Suspect]
     Active Substance: CENOBAMATE
     Dosage: 250MG ONCE NIGHTLY
     Route: 048
  4. ONFI [Concomitant]
     Active Substance: CLOBAZAM
     Indication: Product used for unknown indication
     Dosage: 10MG IN THE MORNING AND 10MG IN THE EVENING
     Route: 065
  5. ONFI [Concomitant]
     Active Substance: CLOBAZAM
     Dosage: 15MG IN THE MORNING AND 10MG  AT NIGHT
     Route: 065
  6. MULTIVITAMIN                       /00097801/ [Concomitant]
     Indication: Product used for unknown indication
     Dosage: UNK
     Route: 065
  7. ADVIL                              /00109201/ [Concomitant]
     Indication: Pain
     Dosage: UNK
     Route: 065
  8. OXYCODONE [Concomitant]
     Active Substance: OXYCODONE
     Indication: Pain
     Dosage: 20 MILLIGRAM, ONCE IN AWHILE
     Route: 065

REACTIONS (5)
  - Seizure [Recovered/Resolved]
  - Stress [Recovered/Resolved]
  - Expired product administered [Unknown]
  - Aura [Not Recovered/Not Resolved]
  - Seizure [Recovered/Resolved]

NARRATIVE: CASE EVENT DATE: 20231221
